FAERS Safety Report 15951256 (Version 1)
Quarter: 2019Q1

REPORT INFORMATION
  Report Type: Spontaneous
  Country: US (occurrence: US)
  Receive Date: 20190211
  Receipt Date: 20190211
  Transmission Date: 20190417
  Serious: No
  Sender: FDA-Public Use
  Company Number: US-AMGEN INC.-USASP2019020470

PATIENT
  Sex: Female

DRUGS (1)
  1. AIMOVIG [Suspect]
     Active Substance: ERENUMAB-AOOE
     Indication: MIGRAINE
     Dosage: UNK
     Route: 065
     Dates: start: 2018

REACTIONS (13)
  - Vaginal infection [Unknown]
  - Hot flush [Unknown]
  - Withdrawal syndrome [Unknown]
  - Pain [Unknown]
  - Depression [Unknown]
  - Alopecia [Unknown]
  - Abdominal distension [Unknown]
  - Influenza [Unknown]
  - Dizziness [Unknown]
  - Psoriasis [Not Recovered/Not Resolved]
  - Adverse reaction [Unknown]
  - Fungal infection [Unknown]
  - Fatigue [Unknown]

NARRATIVE: CASE EVENT DATE: 2018
